FAERS Safety Report 5807473-8 (Version None)
Quarter: 2008Q3

REPORT INFORMATION
  Report Type: 
  Country: None (occurrence: None)
  Receive Date: 20080711
  Receipt Date: 20080702
  Transmission Date: 20090109
  Serious: Yes (Hospitalization)
  Sender: FDA-Public Use
  Company Number: BE-ABBOTT-08P-013-0460584-00

PATIENT
  Age: 7 Year
  Sex: Male

DRUGS (9)
  1. VALPROATE SODIUM [Suspect]
     Indication: PARTIAL SEIZURES
     Dosage: UNKNOWN
  2. VALPROATE SODIUM [Suspect]
     Indication: GRAND MAL CONVULSION
  3. VALPROATE SODIUM [Suspect]
     Indication: STATUS EPILEPTICUS
  4. LAMOTRIGINE [Suspect]
     Indication: PARTIAL SEIZURES
     Dosage: UNKNOWN
  5. LAMOTRIGINE [Suspect]
     Indication: GRAND MAL CONVULSION
  6. LAMOTRIGINE [Suspect]
     Indication: STATUS EPILEPTICUS
  7. VIGABATRIN [Suspect]
     Indication: PARTIAL SEIZURES
     Dosage: UNKNOWN
  8. VIGABATRIN [Suspect]
     Indication: GRAND MAL CONVULSION
  9. VIGABATRIN [Suspect]
     Indication: STATUS EPILEPTICUS

REACTIONS (4)
  - CONVULSION [None]
  - DRUG INEFFECTIVE [None]
  - FEMUR FRACTURE [None]
  - OSTEOPOROSIS [None]
